FAERS Safety Report 10365503 (Version 1)
Quarter: 2014Q3

REPORT INFORMATION
  Report Type: Spontaneous
  Country: US (occurrence: None)
  Receive Date: 20140805
  Receipt Date: 20140805
  Transmission Date: 20150326
  Serious: Yes (Other)
  Sender: FDA-Public Use
  Company Number: None

PATIENT
  Age: 55 Year
  Sex: Male
  Weight: 77.11 kg

DRUGS (2)
  1. INVEGA [Suspect]
     Active Substance: PALIPERIDONE
     Indication: SCHIZOPHRENIA
     Dosage: 117MG EVERY 3 WEEKS INTRAMUSCULAR
     Route: 030
  2. CLOZAPIN [Suspect]
     Active Substance: CLOZAPINE
     Indication: SCHIZOPHRENIA
     Dosage: 300MG QHS/BEDTIME ORAL
     Route: 048

REACTIONS (3)
  - Electrocardiogram QT prolonged [None]
  - Bundle branch block left [None]
  - Drug interaction [None]

NARRATIVE: CASE EVENT DATE: 20140523
